FAERS Safety Report 8374899-0 (Version None)
Quarter: 2012Q2

REPORT INFORMATION
  Report Type: 
  Country: None (occurrence: None)
  Receive Date: 20120521
  Receipt Date: 20120517
  Transmission Date: 20120825
  Serious: Yes (Life-Threatening, Other)
  Sender: FDA-Public Use
  Company Number: BR-ABBOTT-12P-020-0936425-00

PATIENT
  Sex: Female
  Weight: 108 kg

DRUGS (9)
  1. COMBIVIR [Concomitant]
     Indication: HIV INFECTION
     Dates: start: 20081203
  2. LAMIVUDINE (EPIVIR HBV) [Concomitant]
     Indication: HIV INFECTION
     Route: 048
     Dates: start: 20090507
  3. ATAZANAVIR SULFATE [Concomitant]
     Indication: HIV INFECTION
     Route: 048
     Dates: start: 20081203
  4. AMPICILLIN [Concomitant]
     Indication: ESCHERICHIA URINARY TRACT INFECTION
     Dates: start: 20111206, end: 20111213
  5. TENOFOVIR DISOPROXIL FUMARATE [Concomitant]
     Indication: HIV INFECTION
     Route: 048
     Dates: start: 20090507
  6. RITONAVIR [Suspect]
     Indication: HIV INFECTION
     Route: 048
  7. MICONAZOLE [Concomitant]
     Indication: VULVOVAGINAL CANDIDIASIS
     Route: 061
     Dates: start: 20111206
  8. FOLIC ACID [Concomitant]
     Indication: PRODUCT USED FOR UNKNOWN INDICATION
     Dates: start: 20111121, end: 20120508
  9. METRONIDAZOLE [Concomitant]
     Indication: VAGINITIS BACTERIAL
     Dates: start: 20111121, end: 20111128

REACTIONS (1)
  - STILLBIRTH [None]
